FAERS Safety Report 20258213 (Version 1)
Quarter: 2021Q4

REPORT INFORMATION
  Report Type: Spontaneous
  Country: US (occurrence: None)
  Receive Date: 20211229
  Receipt Date: 20211229
  Transmission Date: 20220303
  Serious: Yes (Hospitalization)
  Sender: FDA-Public Use
  Company Number: None

PATIENT
  Age: 67 Year
  Sex: Male

DRUGS (1)
  1. CINACALCET HYDROCHLORIDE [Suspect]
     Active Substance: CINACALCET HYDROCHLORIDE
     Indication: Hyperparathyroidism
     Dosage: TAKE 1 TABLET BY MOUTH DAILY
     Route: 048
     Dates: start: 20190813

REACTIONS (5)
  - Pneumonia [None]
  - Epistaxis [None]
  - Thrombosis [None]
  - Spinal stenosis [None]
  - Gait inability [None]

NARRATIVE: CASE EVENT DATE: 20211118
